FAERS Safety Report 12739735 (Version 1)
Quarter: 2016Q3

REPORT INFORMATION
  Report Type: Spontaneous
  Country: MX (occurrence: US)
  Receive Date: 20160910
  Receipt Date: 20160910
  Transmission Date: 20161109
  Serious: Yes (Hospitalization)
  Sender: FDA-Public Use
  Company Number: None

PATIENT
  Age: 29 Year
  Sex: Male
  Weight: 48 kg

DRUGS (1)
  1. CISPLATIN. [Suspect]
     Active Substance: CISPLATIN
     Dates: end: 20160829

REACTIONS (8)
  - Productive cough [None]
  - Hypophagia [None]
  - Mucosal inflammation [None]
  - Neck pain [None]
  - Oropharyngeal pain [None]
  - Pyrexia [None]
  - Fatigue [None]
  - Radiation injury [None]

NARRATIVE: CASE EVENT DATE: 20160907
